FAERS Safety Report 7137409-1 (Version None)
Quarter: 2010Q4

REPORT INFORMATION
  Report Type: 
  Country: None (occurrence: None)
  Receive Date: 20101206
  Receipt Date: 20101201
  Transmission Date: 20110411
  Serious: Yes (Death, Hospitalization)
  Sender: FDA-Public Use
  Company Number: PHHY2010BR81791

PATIENT
  Sex: Female

DRUGS (3)
  1. ACLASTA [Suspect]
     Indication: OSTEOPOROSIS
     Dosage: 5MG/100ML
     Dates: start: 20090101
  2. ALINIA [Concomitant]
     Indication: CHRONIC MYELOID LEUKAEMIA
     Dosage: 6/200MCG ,TWICE DAILY
  3. ARADOIS [Concomitant]
     Indication: HYPERTENSION
     Dosage: 100MG, 1 TABLET DAILY
     Route: 048

REACTIONS (4)
  - DYSPNOEA [None]
  - PNEUMONIA [None]
  - SEPSIS [None]
  - SEPTIC SHOCK [None]
